FAERS Safety Report 8330307-7 (Version None)
Quarter: 2012Q2

REPORT INFORMATION
  Report Type: 
  Country: None (occurrence: None)
  Receive Date: 20120430
  Receipt Date: 20120420
  Transmission Date: 20120825
  Serious: Yes (Other)
  Sender: FDA-Public Use
  Company Number: 2012SP018464

PATIENT
  Age: 60 Year
  Sex: Female

DRUGS (11)
  1. IRBETAN [Concomitant]
  2. LASIX [Concomitant]
  3. ROCALTROL [Concomitant]
  4. ASPIRIN [Concomitant]
  5. CARVEDILOL [Concomitant]
  6. SELBEX [Concomitant]
  7. CLARITIN REDITABS [Suspect]
     Indication: RHINITIS ALLERGIC
     Dosage: 10 MG;PO
     Route: 048
     Dates: start: 20120323, end: 20120327
  8. WARFARIN /00014802/ [Concomitant]
  9. PLETAL [Concomitant]
  10. OMEPRAZOLE [Concomitant]
  11. RISPERIDONE [Concomitant]

REACTIONS (3)
  - HEMIPLEGIA [None]
  - HYPOTHERMIA [None]
  - CEREBRAL INFARCTION [None]
